FAERS Safety Report 21365040 (Version 1)
Quarter: 2022Q3

REPORT INFORMATION
  Report Type: Spontaneous
  Country: US (occurrence: None)
  Receive Date: 20220922
  Receipt Date: 20220922
  Transmission Date: 20221027
  Serious: Yes (Other)
  Sender: FDA-Public Use
  Company Number: None

PATIENT
  Age: 82 Year
  Sex: Female

DRUGS (2)
  1. LISTERINE COOL MINT ANTISEPTIC [Suspect]
     Active Substance: EUCALYPTOL\MENTHOL\METHYL SALICYLATE\THYMOL
     Dosage: FREQUENCY : 3 TIMES A DAY;?
     Route: 061
  2. PREDNISONE [Concomitant]

REACTIONS (2)
  - Lip swelling [None]
  - Aphonia [None]

NARRATIVE: CASE EVENT DATE: 20220919
